FAERS Safety Report 5236874-4 (Version None)
Quarter: 2007Q1

REPORT INFORMATION
  Report Type: 
  Country: None (occurrence: None)
  Receive Date: 20070213
  Receipt Date: 20060425
  Transmission Date: 20070707
  Serious: No
  Sender: FDA-Public Use
  Company Number: US-BRISTOL-MYERS SQUIBB COMPANY-13357363

PATIENT
  Sex: Female

DRUGS (1)
  1. KENALOG [Suspect]
     Route: 061

REACTIONS (3)
  - ERYTHEMA [None]
  - PRURITUS [None]
  - SKIN LESION [None]
